FAERS Safety Report 6120909-0 (Version None)
Quarter: 2009Q1

REPORT INFORMATION
  Report Type: 
  Country: None (occurrence: None)
  Receive Date: 20090312
  Receipt Date: 20090220
  Transmission Date: 20090719
  Serious: Yes (Hospitalization)
  Sender: FDA-Public Use
  Company Number: MSTR-NO-0903S-0056

PATIENT
  Age: 66 Year
  Sex: Female
  Weight: 53 kg

DRUGS (3)
  1. METASTRON [Suspect]
     Indication: METASTATIC PAIN
     Dosage: SINGLE DOSE, I.V.
     Route: 042
     Dates: start: 20080613, end: 20080613
  2. FENTANYL (DUROTEP) [Concomitant]
  3. MORPHINE HYDROCHLORIDE (OPSO) [Concomitant]

REACTIONS (1)
  - DEMENTIA [None]
